FAERS Safety Report 21472937 (Version 9)
Quarter: 2025Q1

REPORT INFORMATION
  Report Type: Spontaneous
  Country: US (occurrence: US)
  Receive Date: 20221018
  Receipt Date: 20250130
  Transmission Date: 20250409
  Serious: Yes (Hospitalization, Other)
  Sender: PFIZER
  Company Number: US-PFIZER INC-PV202200084845

PATIENT
  Age: 68 Year
  Sex: Female

DRUGS (3)
  1. IBRANCE [Suspect]
     Active Substance: PALBOCICLIB
     Indication: Breast cancer female
     Route: 048
     Dates: start: 20200623
  2. IBRANCE [Suspect]
     Active Substance: PALBOCICLIB
     Route: 048
  3. LETROZOLE [Concomitant]
     Active Substance: LETROZOLE
     Indication: Neoplasm malignant

REACTIONS (9)
  - Cerebrovascular accident [Recovering/Resolving]
  - Hypoaesthesia [Unknown]
  - Confusional state [Not Recovered/Not Resolved]
  - Musculoskeletal disorder [Not Recovered/Not Resolved]
  - Memory impairment [Unknown]
  - Speech disorder [Unknown]
  - Muscular weakness [Unknown]
  - Off label use [Unknown]
  - Product use issue [Unknown]

NARRATIVE: CASE EVENT DATE: 20220101
